FAERS Safety Report 6898326-5 (Version None)
Quarter: 2010Q3

REPORT INFORMATION
  Report Type: 
  Country: None (occurrence: None)
  Receive Date: 20100802
  Receipt Date: 20071004
  Transmission Date: 20110219
  Serious: Yes (Other)
  Sender: FDA-Public Use
  Company Number: US-PFIZER INC-2007083819

PATIENT
  Sex: Female
  Weight: 62.6 kg

DRUGS (7)
  1. LYRICA [Suspect]
     Indication: NEURALGIA
     Dates: start: 20060101
  2. NEURONTIN [Suspect]
     Indication: RESTLESS LEGS SYNDROME
  3. COZAAR [Concomitant]
     Indication: HYPERTENSION
  4. METHIMAZOLE [Concomitant]
  5. EFFEXOR [Concomitant]
  6. FLEXERIL [Concomitant]
  7. ULTRAM [Concomitant]

REACTIONS (5)
  - FIBROMYALGIA [None]
  - INTENTIONAL DRUG MISUSE [None]
  - NEURALGIA [None]
  - SOMNOLENCE [None]
  - WEIGHT INCREASED [None]
